APPROVED DRUG PRODUCT: PRINIVIL
Active Ingredient: LISINOPRIL
Strength: 2.5MG
Dosage Form/Route: TABLET;ORAL
Application: N019558 | Product #006
Applicant: MERCK RESEARCH LABORATORIES DIV MERCK CO INC
Approved: Jan 28, 1994 | RLD: No | RS: No | Type: DISCN